FAERS Safety Report 9347487 (Version 1)
Quarter: 2013Q2

REPORT INFORMATION
  Report Type: Report from Study
  Country: CN (occurrence: CN)
  Receive Date: 20130614
  Receipt Date: 20130614
  Transmission Date: 20140414
  Serious: Yes (Other)
  Sender: FDA-Public Use
  Company Number: CN-ROCHE-1035628

PATIENT
  Sex: 0

DRUGS (2)
  1. CAPECITABINE [Suspect]
     Indication: GASTRIC CANCER
     Dosage: BID FROM DAY 1-14 FOLLOWED BY 7 DAYS REST INTERVAL EVERY 3 WEEKS.
     Route: 065
  2. PACLITAXEL [Suspect]
     Indication: GASTRIC CANCER
     Dosage: 3 HR INFUSION ON DAY 1 AND 8.
     Route: 065

REACTIONS (16)
  - Leukopenia [Unknown]
  - Neutropenia [Unknown]
  - Alopecia [Unknown]
  - Fatigue [Unknown]
  - Nausea [Unknown]
  - Vomiting [Unknown]
  - Palmar-plantar erythrodysaesthesia syndrome [Unknown]
  - Diarrhoea [Unknown]
  - Neurotoxicity [Unknown]
  - Hepatic function abnormal [Unknown]
  - Anaemia [Unknown]
  - Thrombocytopenia [Unknown]
  - Stomatitis [Unknown]
  - Hypersensitivity [Unknown]
  - Arrhythmia [Unknown]
  - Neuropathy peripheral [Unknown]
